FAERS Safety Report 9802058 (Version 1)
Quarter: 2014Q1

REPORT INFORMATION
  Report Type: Spontaneous
  Country: US (occurrence: US)
  Receive Date: 20140107
  Receipt Date: 20140107
  Transmission Date: 20141002
  Serious: No
  Sender: FDA-Public Use
  Company Number: US-BIOGENIDEC-2013BI124209

PATIENT
  Sex: Male

DRUGS (6)
  1. TECFIDERA [Suspect]
     Indication: MULTIPLE SCLEROSIS
     Route: 048
     Dates: start: 20131119
  2. TECFIDERA [Suspect]
     Indication: MULTIPLE SCLEROSIS
     Route: 048
     Dates: start: 20131219
  3. AMITRIPTYLINE [Concomitant]
  4. VITAMIN D3 [Concomitant]
  5. BACLOFEN [Concomitant]
  6. NORTRIPTYLINE [Concomitant]

REACTIONS (2)
  - Fatigue [Unknown]
  - Nausea [Unknown]
